FAERS Safety Report 4458494-1 (Version None)
Quarter: 2004Q3

REPORT INFORMATION
  Report Type: 
  Country: None (occurrence: None)
  Receive Date: 20040922
  Receipt Date: 20031007
  Transmission Date: 20050211
  Serious: Yes (Hospitalization)
  Sender: FDA-Public Use
  Company Number: US-SHR-03-004391

PATIENT
  Age: 59 Year
  Sex: Female
  Weight: 52.2 kg

DRUGS (4)
  1. BETASERON [Suspect]
     Indication: MULTIPLE SCLEROSIS
     Dosage: 8 MIU, EVERY 2D, SUBCUTANEOUS
     Route: 058
     Dates: start: 19930101
  2. ZOLOFT [Concomitant]
  3. KLONOPIN [Concomitant]
  4. PEPCID [Concomitant]

REACTIONS (3)
  - CALCINOSIS [None]
  - FALL [None]
  - INJECTION SITE CELLULITIS [None]
